FAERS Safety Report 9733042 (Version 1)
Quarter: 2013Q4

REPORT INFORMATION
  Report Type: Spontaneous
  Country: US (occurrence: None)
  Receive Date: 20131203
  Receipt Date: 20131203
  Transmission Date: 20140711
  Serious: Yes (Other)
  Sender: FDA-Public Use
  Company Number: 2013P1021586

PATIENT
  Age: 62 Year
  Sex: Female

DRUGS (1)
  1. KAYEXALATE [Suspect]

REACTIONS (2)
  - Abdominal pain [None]
  - Escherichia infection [None]
